FAERS Safety Report 5586062-7 (Version None)
Quarter: 2008Q1

REPORT INFORMATION
  Report Type: 
  Country: None (occurrence: None)
  Receive Date: 20080104
  Receipt Date: 20071228
  Transmission Date: 20080703
  Serious: Yes (Life-Threatening, Other)
  Sender: FDA-Public Use
  Company Number: 062-21880-07121526

PATIENT
  Sex: 0

DRUGS (1)
  1. REVLIMID [Suspect]
     Indication: MYELODYSPLASTIC SYNDROME
     Dosage: 25 MG, DAILY, ORAL
     Route: 048

REACTIONS (7)
  - DIARRHOEA [None]
  - DRY SKIN [None]
  - ERYTHEMA [None]
  - MUSCLE SPASMS [None]
  - NEUTROPENIA [None]
  - PRURITUS [None]
  - THROMBOCYTOPENIA [None]
